FAERS Safety Report 16350938 (Version 1)
Quarter: 2019Q2

REPORT INFORMATION
  Report Type: Spontaneous
  Country: RU (occurrence: RU)
  Receive Date: 20190524
  Receipt Date: 20190524
  Transmission Date: 20190711
  Serious: Yes (Other)
  Sender: FDA-Public Use
  Company Number: RU-ROCHE-2321378

PATIENT
  Age: 60 Year
  Sex: Female

DRUGS (7)
  1. DOCETAXEL. [Suspect]
     Active Substance: DOCETAXEL
     Indication: BREAST CANCER
     Dosage: 8 COURSES
     Route: 065
     Dates: start: 20130815, end: 20140117
  2. CARBOPLATIN. [Suspect]
     Active Substance: CARBOPLATIN
     Indication: BREAST CANCER
     Route: 042
     Dates: start: 201612, end: 201705
  3. TRASTUZUMAB EMTANSINE [Suspect]
     Active Substance: ADO-TRASTUZUMAB EMTANSINE
     Indication: BREAST CANCER
     Dosage: 6 COURSES
     Route: 065
     Dates: start: 201708, end: 201711
  4. HERCEPTIN [Suspect]
     Active Substance: TRASTUZUMAB
     Route: 065
     Dates: start: 201511, end: 201605
  5. PACLITAXEL. [Suspect]
     Active Substance: PACLITAXEL
     Indication: BREAST CANCER
     Dosage: 8 COURSES
     Route: 065
     Dates: start: 201612, end: 201705
  6. HERCEPTIN [Suspect]
     Active Substance: TRASTUZUMAB
     Indication: BREAST CANCER
     Dosage: 8 COURSES
     Route: 065
     Dates: start: 20130815
  7. CAPECITABINE. [Suspect]
     Active Substance: CAPECITABINE
     Indication: BREAST CANCER
     Route: 048
     Dates: start: 201511, end: 201605

REACTIONS (9)
  - Neutropenia [Unknown]
  - Disease progression [Unknown]
  - Rash [Unknown]
  - Asthenia [Unknown]
  - Stomatitis [Unknown]
  - Ataxia [Unknown]
  - Pulmonary renal syndrome [Unknown]
  - Polyneuropathy [Unknown]
  - Dysarthria [Unknown]

NARRATIVE: CASE EVENT DATE: 201511
